FAERS Safety Report 8044791-X (Version None)
Quarter: 2012Q1

REPORT INFORMATION
  Report Type: 
  Country: None (occurrence: None)
  Receive Date: 20120113
  Receipt Date: 20120112
  Transmission Date: 20120608
  Serious: Yes (Other)
  Sender: FDA-Public Use
  Company Number: US-PFIZER INC-2009161616

PATIENT
  Sex: Female
  Weight: 74.83 kg

DRUGS (8)
  1. LYRICA [Suspect]
     Dosage: 225 MG, UNK
  2. ALTACE [Suspect]
     Indication: HYPERTENSION
     Dosage: 5 MG
     Route: 048
     Dates: start: 20081124
  3. LEXAPRO [Suspect]
     Dosage: 20 MG
  4. TRIAMTERENE AND HYDROCHLOROTHIAZIDE [Concomitant]
     Indication: HYPERTENSION
     Dosage: UNK
  5. SIMVASTATIN [Suspect]
     Dosage: 20 MG
  6. ATENOLOL [Suspect]
     Dosage: 25 MG
  7. XYREM [Suspect]
     Indication: FIBROMYALGIA
     Dosage: 2 G, 2X/DAY
     Route: 048
     Dates: start: 20081124
  8. CYMBALTA [Suspect]
     Dosage: 60 MG

REACTIONS (5)
  - BLOOD PRESSURE INCREASED [None]
  - DYSPEPSIA [None]
  - ABDOMINAL PAIN [None]
  - ABDOMINAL DISTENSION [None]
  - OEDEMA PERIPHERAL [None]
